FAERS Safety Report 5748547-X (Version None)
Quarter: 2008Q2

REPORT INFORMATION
  Report Type: 
  Country: None (occurrence: None)
  Receive Date: 20080523
  Receipt Date: 20080514
  Transmission Date: 20081010
  Serious: Yes (Death)
  Sender: FDA-Public Use
  Company Number: CA-PFIZER INC-2008041999

PATIENT
  Sex: Female
  Weight: 91.6 kg

DRUGS (8)
  1. ZIPRASIDONE (CAPS) [Suspect]
     Route: 048
     Dates: start: 20020307, end: 20080510
  2. LAMOTRIGINE [Concomitant]
     Route: 048
     Dates: start: 20071201, end: 20080510
  3. NASONEX [Concomitant]
     Route: 045
     Dates: start: 20061204, end: 20080510
  4. SYMBICORT TURBOHALER [Concomitant]
     Route: 055
     Dates: start: 20070518, end: 20080510
  5. AERIUS [Concomitant]
     Route: 048
     Dates: start: 20061220, end: 20080510
  6. IBUPROFEN [Concomitant]
     Route: 048
     Dates: start: 20061224, end: 20080510
  7. YASMIN [Concomitant]
     Route: 048
     Dates: start: 20080215, end: 20080510
  8. ALESSE [Concomitant]
     Route: 048
     Dates: start: 20080212, end: 20080510

REACTIONS (1)
  - DEATH [None]
